FAERS Safety Report 6213350-3 (Version None)
Quarter: 2009Q2

REPORT INFORMATION
  Report Type: 
  Country: None (occurrence: None)
  Receive Date: 20090601
  Receipt Date: 20090601
  Transmission Date: 20091009
  Serious: No
  Sender: FDA-Public Use
  Company Number: None

PATIENT
  Age: 62 Year
  Sex: Female
  Weight: 92.0802 kg

DRUGS (1)
  1. TEMAZEPAM [Suspect]
     Indication: SLEEP DISORDER
     Dosage: 30MG 1 NIGHT AS NEED PO
     Route: 048
     Dates: start: 20090501, end: 20090526

REACTIONS (3)
  - ACTIVITIES OF DAILY LIVING IMPAIRED [None]
  - CAPSULE ISSUE [None]
  - DRUG INEFFECTIVE [None]
